FAERS Safety Report 13562147 (Version 1)
Quarter: 2017Q2

REPORT INFORMATION
  Report Type: Spontaneous
  Country: US (occurrence: US)
  Receive Date: 20170519
  Receipt Date: 20170519
  Transmission Date: 20170830
  Serious: No
  Sender: FDA-Public Use
  Company Number: US-ASTRAZENECA-2017SE49927

PATIENT
  Age: 704 Month
  Sex: Female
  Weight: 90.7 kg

DRUGS (2)
  1. SYMBICORT [Suspect]
     Active Substance: BUDESONIDE\FORMOTEROL FUMARATE DIHYDRATE
     Indication: RESPIRATORY DISORDER
     Dosage: 160/4.5, 2 INHALATIONS, AS NEEDED
     Route: 055
     Dates: start: 200911
  2. NAPROXEN. [Concomitant]
     Active Substance: NAPROXEN
     Indication: ARTHRITIS
     Dosage: 400.0MG AS REQUIRED

REACTIONS (8)
  - Tongue discolouration [Unknown]
  - Oropharyngeal pain [Unknown]
  - Lip pain [Unknown]
  - Hiatus hernia [Unknown]
  - Diverticulitis [Unknown]
  - Product use issue [Unknown]
  - Insurance issue [Unknown]
  - Glossodynia [Unknown]

NARRATIVE: CASE EVENT DATE: 201701
